FAERS Safety Report 6446016-5 (Version None)
Quarter: 2009Q4

REPORT INFORMATION
  Report Type: 
  Country: None (occurrence: None)
  Receive Date: 20091119
  Receipt Date: 20090803
  Transmission Date: 20100525
  Serious: No
  Sender: FDA-Public Use
  Company Number: A0800119A

PATIENT
  Age: 57 Year
  Sex: Male

DRUGS (2)
  1. BUPROPION HYDROCHLORIDE [Suspect]
     Indication: DEPRESSION
     Dosage: 150MG PER DAY
     Route: 048
     Dates: start: 20080301
  2. ABILIFY [Suspect]
     Dosage: 15MG PER DAY
     Route: 065
     Dates: start: 20080301

REACTIONS (1)
  - DECREASED APPETITE [None]
